FAERS Safety Report 16571622 (Version 1)
Quarter: 2019Q3

REPORT INFORMATION
  Report Type: Spontaneous
  Country: US (occurrence: US)
  Receive Date: 20190714
  Receipt Date: 20190714
  Transmission Date: 20191004
  Serious: Yes (Other)
  Sender: FDA-Public Use
  Company Number: None

PATIENT
  Age: 66 Year
  Sex: Female
  Weight: 76.5 kg

DRUGS (14)
  1. LEVOTHYROXIN [Concomitant]
     Active Substance: LEVOTHYROXINE
  2. MAGNESIUM + ZINC [Concomitant]
  3. CITRACAL [Concomitant]
     Active Substance: CALCIUM CITRATE
  4. CPAP MACHINE [Concomitant]
  5. FOLIC ACID. [Concomitant]
     Active Substance: FOLIC ACID
  6. STOOL SOFTENER (DOCUSATE) [Concomitant]
     Active Substance: DOCUSATE
  7. VITAMIN B COMPLEX [Concomitant]
     Active Substance: CYANOCOBALAMIN\DEXPANTHENOL\NIACINAMIDE\PYRIDOXINE HYDROCHLORIDE\RIBOFLAVIN 5^-PHOSPHATE SODIUM\THIAMINE HYDROCHLORIDE\VITAMIN B COMPLEX
  8. VIT D [Concomitant]
     Active Substance: VITAMIN D NOS
  9. LOSARTARN SIMVASTATIN [Concomitant]
  10. PROBIOTIC [Concomitant]
     Active Substance: PROBIOTICS NOS
  11. XIIDRA [Suspect]
     Active Substance: LIFITEGRAST
     Indication: DRY EYE
     Dosage: ?          QUANTITY:1 DROP(S);?
     Route: 047
     Dates: start: 20190615, end: 20190623
  12. VENLAFLAXINE [Concomitant]
     Active Substance: VENLAFAXINE HYDROCHLORIDE
  13. PROPRANOLOL ER [Concomitant]
     Active Substance: PROPRANOLOL HYDROCHLORIDE
  14. BABY ASPIRIN [Concomitant]
     Active Substance: ASPIRIN

REACTIONS (3)
  - Eyelid exfoliation [None]
  - Eye irritation [None]
  - Eye haemorrhage [None]

NARRATIVE: CASE EVENT DATE: 20190625
